FAERS Safety Report 4530549-2 (Version None)
Quarter: 2004Q4

REPORT INFORMATION
  Report Type: 
  Country: None (occurrence: None)
  Receive Date: 20041216
  Receipt Date: 20041203
  Transmission Date: 20050328
  Serious: Yes (Death, Hospitalization)
  Sender: FDA-Public Use
  Company Number: 2001073441FR

PATIENT
  Age: 83 Year
  Sex: Female

DRUGS (5)
  1. CELEBREX [Suspect]
     Indication: ARTHROPATHY
     Dosage: 200 MG (QD), ORAL
     Route: 048
     Dates: start: 20010703, end: 20010713
  2. DILTIAZEM [Concomitant]
  3. NITROGLYCERIN [Concomitant]
  4. MOLSIDOMINE (MOLSIDOMINE) [Concomitant]
  5. RANITIDINE HYDROCHLORIDE [Concomitant]

REACTIONS (2)
  - ARRHYTHMIA [None]
  - CARDIAC DISORDER [None]
